FAERS Safety Report 23847019 (Version 1)
Quarter: 2024Q2

REPORT INFORMATION
  Report Type: Spontaneous
  Country: CN (occurrence: CN)
  Receive Date: 20240513
  Receipt Date: 20240513
  Transmission Date: 20240715
  Serious: Yes (Hospitalization)
  Sender: FDA-Public Use
  Company Number: CN-BEIGENE-BGN-2024-006955

PATIENT

DRUGS (2)
  1. TISLELIZUMAB [Suspect]
     Active Substance: TISLELIZUMAB
     Indication: Oesophageal carcinoma
     Dosage: 200 MILLIGRAM
     Route: 041
     Dates: start: 20240411
  2. CAPECITABINE [Concomitant]
     Active Substance: CAPECITABINE
     Indication: Oesophageal carcinoma
     Dosage: 1.5 GRAM, QD
     Dates: start: 20240411

REACTIONS (1)
  - Hypomagnesaemia [Recovering/Resolving]

NARRATIVE: CASE EVENT DATE: 20240416
